FAERS Safety Report 8517509-1 (Version None)
Quarter: 2012Q3

REPORT INFORMATION
  Report Type: 
  Country: None (occurrence: None)
  Receive Date: 20120718
  Receipt Date: 20120709
  Transmission Date: 20120928
  Serious: Yes (Hospitalization)
  Sender: FDA-Public Use
  Company Number: US-ASTRAZENECA-2012SE29812

PATIENT
  Age: 66 Year
  Sex: Male

DRUGS (2)
  1. TOPROL-XL [Suspect]
     Route: 048
  2. NEXIUM [Suspect]
     Route: 048

REACTIONS (12)
  - CARDIAC DISORDER [None]
  - JOINT INJURY [None]
  - FALL [None]
  - GAIT DISTURBANCE [None]
  - MALAISE [None]
  - MYOCARDIAL INFARCTION [None]
  - ACTIVITIES OF DAILY LIVING IMPAIRED [None]
  - DIABETES MELLITUS [None]
  - POISONING [None]
  - DIZZINESS [None]
  - INSOMNIA [None]
  - NEUROPATHY PERIPHERAL [None]
